FAERS Safety Report 14465071 (Version 1)
Quarter: 2018Q1

REPORT INFORMATION
  Report Type: Other
  Country: US (occurrence: US)
  Receive Date: 20180130
  Receipt Date: 20180130
  Transmission Date: 20180509
  Serious: No
  Sender: FDA-Public Use
  Company Number: US-ACORDA-ACO_136470_2017

PATIENT
  Age: 66 Year
  Sex: Female

DRUGS (1)
  1. AMPYRA [Suspect]
     Active Substance: DALFAMPRIDINE
     Indication: MULTIPLE SCLEROSIS
     Dosage: 10 MG, BID
     Route: 048
     Dates: start: 20110310, end: 20170210

REACTIONS (5)
  - Cough [Unknown]
  - Pyrexia [Unknown]
  - Pain [Unknown]
  - Laboratory test abnormal [Unknown]
  - Wheezing [Unknown]

NARRATIVE: CASE EVENT DATE: 20170324
